FAERS Safety Report 4393834-3 (Version None)
Quarter: 2004Q3

REPORT INFORMATION
  Report Type: 
  Country: None (occurrence: None)
  Receive Date: 20040706
  Receipt Date: 20040624
  Transmission Date: 20050211
  Serious: Yes (Hospitalization)
  Sender: FDA-Public Use
  Company Number: 2004-117997-NL

PATIENT
  Age: 37 Year
  Sex: Female

DRUGS (9)
  1. VECURONIUM BROMIDE [Suspect]
     Indication: INDUCTION OF ANAESTHESIA
  2. SEVOFLURANE [Suspect]
     Indication: MAINTENANCE OF ANAESTHESIA
  3. PROPOFOL [Concomitant]
  4. FENTANYL [Concomitant]
  5. NITROUS OXIDE [Concomitant]
  6. OXYGEN [Concomitant]
  7. HALOPERIDOL [Concomitant]
  8. LEVOMEPROMAZINE MALEATE [Concomitant]
  9. LORMETAZEPAM [Concomitant]

REACTIONS (1)
  - HYPERTHERMIA MALIGNANT [None]
